FAERS Safety Report 5715460-3 (Version None)
Quarter: 2008Q2

REPORT INFORMATION
  Report Type: 
  Country: None (occurrence: None)
  Receive Date: 20080422
  Receipt Date: 20080408
  Transmission Date: 20081010
  Serious: Yes (Other)
  Sender: FDA-Public Use
  Company Number: 233383J08USA

PATIENT
  Age: 52 Year
  Sex: Female

DRUGS (1)
  1. REBIF [Suspect]
     Indication: MULTIPLE SCLEROSIS
     Dates: start: 20070807, end: 20080301

REACTIONS (3)
  - MALIGNANT MELANOMA [None]
  - POST PROCEDURAL SWELLING [None]
  - PROCEDURAL PAIN [None]
